FAERS Safety Report 24853654 (Version 1)
Quarter: 2025Q1

REPORT INFORMATION
  Report Type: Spontaneous
  Country: IT (occurrence: IT)
  Receive Date: 20250117
  Receipt Date: 20250117
  Transmission Date: 20250409
  Serious: Yes (Hospitalization)
  Sender: CHEPLAPHARM
  Company Number: None

PATIENT
  Age: 57 Year
  Sex: Female
  Weight: 94 kg

DRUGS (2)
  1. ORLISTAT [Suspect]
     Active Substance: ORLISTAT
     Indication: Product used for unknown indication
     Dosage: 1 CP PER DAY?DAILY DOSE: 1 DOSAGE FORM
     Route: 048
     Dates: start: 20241101
  2. SIMVASTATIN [Suspect]
     Active Substance: SIMVASTATIN
     Indication: Product used for unknown indication
     Dosage: 1 CP PER DAY?DAILY DOSE: 1 DOSAGE FORM
     Route: 048
     Dates: start: 20210901, end: 20241207

REACTIONS (3)
  - Hepatitis acute [Recovered/Resolved]
  - Myositis [Recovered/Resolved]
  - Muscular weakness [Recovered/Resolved]

NARRATIVE: CASE EVENT DATE: 20241207
